FAERS Safety Report 9136660 (Version 1)
Quarter: 2013Q1

REPORT INFORMATION
  Report Type: Spontaneous
  Country: US (occurrence: US)
  Receive Date: 20130304
  Receipt Date: 20130304
  Transmission Date: 20140127
  Serious: No
  Sender: FDA-Public Use
  Company Number: US-ABBOTT-12P-163-0969797-00

PATIENT
  Sex: Male
  Weight: 88.53 kg

DRUGS (6)
  1. ANDROGEL 1% [Suspect]
     Indication: BLOOD TESTOSTERONE DECREASED
     Route: 061
     Dates: start: 201206
  2. JANTOVEN [Concomitant]
     Indication: STENT PLACEMENT
  3. PEPCID [Concomitant]
     Indication: GASTRIC DISORDER
  4. ASPIRIN [Concomitant]
     Indication: CARDIAC DISORDER
  5. CRESTOR [Concomitant]
     Indication: BLOOD CHOLESTEROL
  6. AMIODARONE [Concomitant]
     Indication: CARDIAC DISORDER

REACTIONS (5)
  - Abdominal pain [Not Recovered/Not Resolved]
  - Weight increased [Not Recovered/Not Resolved]
  - Oedema [Not Recovered/Not Resolved]
  - Nausea [Not Recovered/Not Resolved]
  - Pollakiuria [Not Recovered/Not Resolved]
